FAERS Safety Report 11986779 (Version 1)
Quarter: 2016Q1

REPORT INFORMATION
  Report Type: Spontaneous
  Country: US (occurrence: None)
  Receive Date: 20160201
  Receipt Date: 20160201
  Transmission Date: 20160526
  Serious: Yes (Disabling)
  Sender: FDA-Public Use
  Company Number: None

PATIENT
  Age: 67 Year
  Sex: Female
  Weight: 86.18 kg

DRUGS (16)
  1. METOPROLOL. [Concomitant]
     Active Substance: METOPROLOL
  2. MANNATECH PLUS AND IMMUNOSTART [Concomitant]
  3. OCUVITE [Concomitant]
     Active Substance: VITAMINS
  4. ASPIRIN. [Concomitant]
     Active Substance: ASPIRIN
  5. SENNA [Concomitant]
     Active Substance: SENNA LEAF\SENNOSIDES\SENNOSIDES A AND B
  6. JANUVIA [Concomitant]
     Active Substance: SITAGLIPTIN PHOSPHATE
  7. PROGRAM [Concomitant]
  8. VITAMIN B12 [Concomitant]
     Active Substance: CYANOCOBALAMIN
  9. CRANBERRY. [Concomitant]
     Active Substance: CRANBERRY
  10. COLACE [Concomitant]
     Active Substance: DOCUSATE SODIUM
  11. INSULIN [Suspect]
     Active Substance: INSULIN NOS
     Indication: DIABETES MELLITUS
     Dosage: INTO THE MUSCLE
     Route: 030
     Dates: start: 20040715, end: 20130515
  12. OXYCODONE [Concomitant]
     Active Substance: OXYCODONE
  13. FLAXSEED [Concomitant]
     Active Substance: FLAX SEED
  14. LEVOTHYROXIN [Concomitant]
     Active Substance: LEVOTHYROXINE
  15. VITAMIN B6 [Concomitant]
     Active Substance: PYRIDOXINE HYDROCHLORIDE
  16. VITAMIN D3 [Concomitant]
     Active Substance: CHOLECALCIFEROL

REACTIONS (9)
  - Movement disorder [None]
  - Dyspnoea [None]
  - Disturbance in attention [None]
  - Feeling hot [None]
  - Decreased activity [None]
  - Memory impairment [None]
  - Reaction to preservatives [None]
  - Chest discomfort [None]
  - Hypersomnia [None]

NARRATIVE: CASE EVENT DATE: 20040715
